FAERS Safety Report 13713013 (Version 1)
Quarter: 2017Q3

REPORT INFORMATION
  Report Type: Spontaneous
  Country: FR (occurrence: FR)
  Receive Date: 20170704
  Receipt Date: 20170704
  Transmission Date: 20171127
  Serious: Yes (Death)
  Sender: FDA-Public Use
  Company Number: FR-BAXTER-2017BAX026458

PATIENT
  Age: 52 Year
  Sex: Female

DRUGS (4)
  1. ENDOXAN 1000 MG, POUDRE POUR SOLUTION INJECTABLE [Suspect]
     Active Substance: CYCLOPHOSPHAMIDE
     Indication: ACUTE LYMPHOCYTIC LEUKAEMIA
     Dosage: INFUSION, ONCE DAILY
     Route: 042
     Dates: start: 20170407, end: 20170412
  2. ETOPOSIDE MYLAN [Suspect]
     Active Substance: ETOPOSIDE
     Indication: ACUTE LYMPHOCYTIC LEUKAEMIA
     Dosage: INFUSION, ONCE DAILY
     Route: 042
     Dates: start: 20170408, end: 20170412
  3. DEFIBROTIDE [Suspect]
     Active Substance: DEFIBROTIDE (BOVINE)
     Indication: VENOOCCLUSIVE LIVER DISEASE
     Route: 065
     Dates: start: 20170516
  4. EVOLTRA [Suspect]
     Active Substance: CLOFARABINE
     Indication: ACUTE LYMPHOCYTIC LEUKAEMIA
     Dosage: INFUSION, ONCE DAILY
     Route: 042
     Dates: start: 20170408, end: 20170412

REACTIONS (4)
  - Venoocclusive liver disease [Fatal]
  - Cardiac failure acute [Fatal]
  - Multiple organ dysfunction syndrome [Fatal]
  - Hepatic failure [Fatal]

NARRATIVE: CASE EVENT DATE: 20170516
